FAERS Safety Report 7264543-8 (Version None)
Quarter: 2011Q1

REPORT INFORMATION
  Report Type: 
  Country: None (occurrence: None)
  Receive Date: 20110131
  Receipt Date: 20110124
  Transmission Date: 20110831
  Serious: No
  Sender: FDA-Public Use
  Company Number: US-PFIZER INC-2011014356

PATIENT
  Sex: Male
  Weight: 79.365 kg

DRUGS (1)
  1. LIPITOR [Suspect]
     Indication: BLOOD CHOLESTEROL INCREASED
     Dosage: UNK
     Route: 048
     Dates: start: 20101217, end: 20101201

REACTIONS (2)
  - DRUG HYPERSENSITIVITY [None]
  - EYE SWELLING [None]
